FAERS Safety Report 19204988 (Version 5)
Quarter: 2021Q2

REPORT INFORMATION
  Report Type: Report from Study
  Country: CN (occurrence: CN)
  Receive Date: 20210503
  Receipt Date: 20210630
  Transmission Date: 20210717
  Serious: Yes (Hospitalization)
  Sender: FDA-Public Use
  Company Number: CN-ROCHE-2815379

PATIENT
  Age: 68 Year
  Sex: Male
  Weight: 72 kg

DRUGS (12)
  1. BEVACIZUMAB. [Suspect]
     Active Substance: BEVACIZUMAB
     Indication: NON-SMALL CELL LUNG CANCER
     Dosage: BEVACIZUMAB WILL BE ADMINISTERED BY IV INFUSION AT A DOSE OF 15 MG/KG ON DAY 1 OF EACH 21?DAY CYCLE.
     Route: 042
     Dates: start: 20210201
  2. PEMETREXED. [Suspect]
     Active Substance: PEMETREXED
     Indication: NON-SMALL CELL LUNG CANCER
     Dosage: PEMETREXED WILL BE ADMINISTERED BY IV INFUSION AT A DOSE OF 500 MG/M2?DATE OF MOST RECENT DOSE OF ST
     Route: 042
     Dates: start: 20210201
  3. TROPISETRON HYDROCHLORIDE [Concomitant]
     Active Substance: TROPISETRON HYDROCHLORIDE
     Dates: start: 20210317, end: 20210319
  4. CARBOPLATIN. [Suspect]
     Active Substance: CARBOPLATIN
     Indication: NON-SMALL CELL LUNG CANCER
     Dosage: CARBOPLATIN WILL BE ADMINISTERED BY IV INFUSION TO ACHIEVE AN INITIAL TARGET AUC OF 6 MG/ML/MIN?DATE
     Route: 042
     Dates: start: 20210201
  5. DEXAMETHASONE. [Concomitant]
     Active Substance: DEXAMETHASONE
     Dates: start: 20210406, end: 20210408
  6. DEXAMETHASONE. [Concomitant]
     Active Substance: DEXAMETHASONE
     Dates: start: 20210131, end: 20210202
  7. DEXAMETHASONE SODIUM PHOSPHATE. [Concomitant]
     Active Substance: DEXAMETHASONE SODIUM PHOSPHATE
     Route: 042
  8. DEXAMETHASONE. [Concomitant]
     Active Substance: DEXAMETHASONE
     Dates: start: 20210316, end: 20210318
  9. TROPISETRON HYDROCHLORIDE [Concomitant]
     Active Substance: TROPISETRON HYDROCHLORIDE
     Dates: start: 20210201, end: 20210203
  10. ATEZOLIZUMAB. [Suspect]
     Active Substance: ATEZOLIZUMAB
     Indication: NON-SMALL CELL LUNG CANCER
     Dosage: DATE OF MOST RECENT DOSE OF STUDY DRUG PRIOR TO AE 01/FEB/2021?DATE OF MOST RECENT DOSE OF STUDY DRU
     Route: 042
     Dates: start: 20210201
  11. TROPISETRON HYDROCHLORIDE [Concomitant]
     Active Substance: TROPISETRON HYDROCHLORIDE
     Dates: start: 20210223, end: 20210225
  12. TROPISETRON HYDROCHLORIDE [Concomitant]
     Active Substance: TROPISETRON HYDROCHLORIDE
     Dates: start: 20210407, end: 20210409

REACTIONS (2)
  - Anaemia [Not Recovered/Not Resolved]
  - Platelet count decreased [Not Recovered/Not Resolved]

NARRATIVE: CASE EVENT DATE: 20210222
